FAERS Safety Report 10932699 (Version 5)
Quarter: 2016Q4

REPORT INFORMATION
  Report Type: Report from Study
  Country: US (occurrence: US)
  Receive Date: 20150320
  Receipt Date: 20161212
  Transmission Date: 20170206
  Serious: Yes (Hospitalization, Other)
  Sender: FDA-Public Use
  Company Number: US-AMGEN-USASL2015025172

PATIENT
  Age: 60 Year
  Sex: Male
  Weight: 113.38 kg

DRUGS (2)
  1. ENBREL [Suspect]
     Active Substance: ETANERCEPT
     Indication: PSORIASIS
     Dosage: 50 MG, 2 TIMES/WK
     Route: 058
     Dates: start: 200305
  2. ENBREL [Suspect]
     Active Substance: ETANERCEPT
     Indication: PSORIATIC ARTHROPATHY

REACTIONS (15)
  - Knee arthroplasty [Unknown]
  - Surgery [Unknown]
  - Nail disorder [Unknown]
  - Implant site infection [Unknown]
  - Hepatitis C [Recovered/Resolved]
  - Hypoaesthesia [Unknown]
  - Psoriasis [Unknown]
  - Nail pitting [Unknown]
  - Pain in extremity [Not Recovered/Not Resolved]
  - Hip arthroplasty [Unknown]
  - Medical device removal [Unknown]
  - Skin graft [Recovered/Resolved]
  - Arthralgia [Unknown]
  - Neuralgia [Unknown]
  - Joint range of motion decreased [Unknown]

NARRATIVE: CASE EVENT DATE: 2013
